FAERS Safety Report 7660410-6 (Version None)
Quarter: 2011Q3

REPORT INFORMATION
  Report Type: 
  Country: None (occurrence: None)
  Receive Date: 20110805
  Receipt Date: 20110804
  Transmission Date: 20111222
  Serious: Yes (Death, Hospitalization, Other)
  Sender: FDA-Public Use
  Company Number: US-AMGEN-USASP2011039429

PATIENT
  Age: 43 Year
  Sex: Male

DRUGS (1)
  1. NPLATE [Suspect]
     Indication: IDIOPATHIC THROMBOCYTOPENIC PURPURA
     Dosage: 150 A?G, UNK
     Dates: start: 20090415

REACTIONS (4)
  - ABDOMINAL SEPSIS [None]
  - ABDOMINAL ABSCESS [None]
  - MULTI-ORGAN FAILURE [None]
  - ANAEMIA [None]
